FAERS Safety Report 9089039 (Version 1)
Quarter: 2013Q1

REPORT INFORMATION
  Report Type: Spontaneous
  Country: FR (occurrence: FR)
  Receive Date: 20130131
  Receipt Date: 20130131
  Transmission Date: 20140127
  Serious: Yes (Hospitalization)
  Sender: FDA-Public Use
  Company Number: FR-PFIZER INC-2013029085

PATIENT
  Age: 66 Year
  Sex: Male

DRUGS (9)
  1. CHAMPIX [Suspect]
     Indication: SMOKING CESSATION THERAPY
     Dosage: 0.5 MG, DAILY
     Route: 048
     Dates: start: 20120820, end: 20120823
  2. ASCABIOL [Suspect]
     Indication: ACARODERMATITIS
     Dosage: 1 DF, DAILY
     Route: 003
     Dates: start: 20120824, end: 20120825
  3. STROMECTOL [Suspect]
     Indication: ACARODERMATITIS
     Dosage: 1 DF, DAILY
     Route: 048
     Dates: start: 20120824, end: 20120824
  4. BIPERIDYS [Concomitant]
     Dosage: UNK
  5. NICOTINELL [Concomitant]
     Dosage: UNK
  6. KARDEGIC [Concomitant]
     Dosage: UNK
  7. NITRIDERM [Concomitant]
     Dosage: UNK
  8. PARIET [Concomitant]
     Dosage: UNK
  9. SERTRALINE HYDROCHLORIDE [Concomitant]
     Dosage: UNK

REACTIONS (2)
  - Rash maculo-papular [Recovered/Resolved]
  - Purpura [Recovered/Resolved]
